FAERS Safety Report 5373321-6 (Version None)
Quarter: 2007Q2

REPORT INFORMATION
  Report Type: 
  Country: None (occurrence: None)
  Receive Date: 20070628
  Receipt Date: 20070615
  Transmission Date: 20071010
  Serious: Yes (Other)
  Sender: FDA-Public Use
  Company Number: US-ELI_LILLY_AND_COMPANY-US200705006894

PATIENT
  Age: 71 Year
  Sex: Female
  Weight: 40.421 kg

DRUGS (3)
  1. FORTEO [Suspect]
     Indication: OSTEOPOROSIS
     Dosage: 20 UG, DAILY (1/D)
     Dates: start: 20070511, end: 20070501
  2. ERGOCALCIFEROL [Concomitant]
     Dosage: 55 U, UNKNOWN
  3. PAROXETINE HCL [Concomitant]
     Dosage: 5 MG, DAILY (1/D)

REACTIONS (1)
  - TRANSIENT ISCHAEMIC ATTACK [None]
